FAERS Safety Report 7954303-4 (Version None)
Quarter: 2011Q4

REPORT INFORMATION
  Report Type: 
  Country: None (occurrence: None)
  Receive Date: 20111129
  Receipt Date: 20111121
  Transmission Date: 20120403
  Serious: Yes (Hospitalization, Other)
  Sender: FDA-Public Use
  Company Number: 2011SP014822

PATIENT
  Age: 32 Year
  Sex: Female
  Weight: 113.3993 kg

DRUGS (7)
  1. ZYRTEC [Suspect]
     Indication: HYPERSENSITIVITY
     Dates: start: 20080301
  2. COUMADIN [Suspect]
     Indication: COAGULOPATHY
     Dates: start: 20080308, end: 20090308
  3. IBUPROFEN [Concomitant]
  4. FIORICET [Concomitant]
  5. NUVARING [Suspect]
     Indication: MIGRAINE
     Dates: start: 20060101, end: 20080301
  6. NUVARING [Suspect]
     Indication: CONTRACEPTION
     Dates: start: 20060101, end: 20080301
  7. LOVENOX [Suspect]
     Indication: COAGULOPATHY
     Dates: start: 20080306

REACTIONS (13)
  - INJURY [None]
  - HYPERSENSITIVITY [None]
  - THYROID DISORDER [None]
  - HYPOTHALAMO-PITUITARY DISORDER [None]
  - PULMONARY EMBOLISM [None]
  - CAESAREAN SECTION [None]
  - HYPOCHROMIC ANAEMIA [None]
  - PANCREATIC DISORDER [None]
  - THROMBOCYTOPENIA [None]
  - ADRENAL DISORDER [None]
  - DEEP VEIN THROMBOSIS [None]
  - PARATHYROID DISORDER [None]
  - URTICARIA [None]
